FAERS Safety Report 9454113 (Version 3)
Quarter: 2013Q4

REPORT INFORMATION
  Report Type: Spontaneous
  Country: US (occurrence: None)
  Receive Date: 20130807
  Receipt Date: 20131227
  Transmission Date: 20140711
  Serious: Yes (Congenital Anomaly)
  Sender: FDA-Public Use
  Company Number: SYM-2013-07788

PATIENT
  Age: 0 Day
  Sex: Male

DRUGS (1)
  1. WELLBUTRIN XL [Suspect]
     Indication: PRODUCT USED FOR UNKNOWN INDICATION
     Route: 064
     Dates: start: 20041204

REACTIONS (7)
  - Maternal drugs affecting foetus [None]
  - Persistent foetal circulation [None]
  - Caesarean section [None]
  - Large for dates baby [None]
  - Respiratory distress [None]
  - Supraventricular tachycardia [None]
  - Sepsis [None]
